FAERS Safety Report 7762770-4 (Version None)
Quarter: 2011Q3

REPORT INFORMATION
  Report Type: 
  Country: None (occurrence: None)
  Receive Date: 20110920
  Receipt Date: 20110909
  Transmission Date: 20111222
  Serious: Yes (Life-Threatening, Hospitalization)
  Sender: FDA-Public Use
  Company Number: GB-GENENTECH-315489

PATIENT
  Sex: Male
  Weight: 102 kg

DRUGS (1)
  1. XOLAIR [Suspect]
     Indication: ASTHMA
     Dosage: 300 MG, Q2W
     Route: 058
     Dates: start: 20101028, end: 20110411

REACTIONS (4)
  - PNEUMONIA [None]
  - ORGAN FAILURE [None]
  - BLOOD PRESSURE DECREASED [None]
  - ASTHMA [None]
